FAERS Safety Report 19175659 (Version 1)
Quarter: 2021Q2

REPORT INFORMATION
  Report Type: Spontaneous
  Country: FR (occurrence: FR)
  Receive Date: 20210423
  Receipt Date: 20210423
  Transmission Date: 20210717
  Serious: Yes (Other)
  Sender: FDA-Public Use
  Company Number: FR-BAUSCH-BL-2021-013858

PATIENT
  Age: 70 Year
  Sex: Male

DRUGS (10)
  1. DEXAMETHASONE. [Suspect]
     Active Substance: DEXAMETHASONE
     Indication: ALLERGY PROPHYLAXIS
     Route: 042
     Dates: start: 20210108, end: 20210121
  2. PACLITAXEL ACCORD [Suspect]
     Active Substance: PACLITAXEL
     Indication: SQUAMOUS CELL CARCINOMA
     Route: 042
     Dates: start: 20210108, end: 20210121
  3. OPDIVO [Suspect]
     Active Substance: NIVOLUMAB
     Indication: SQUAMOUS CELL CARCINOMA
     Route: 042
     Dates: start: 20201012, end: 20201123
  4. SOLUPRED (PREDNISOLONE METASULFOBENZOATE SODIUM) [Suspect]
     Active Substance: PREDNISOLONE SODIUM METAZOATE
     Indication: PAIN
     Route: 048
     Dates: start: 20201001
  5. INEXIUM [Concomitant]
     Active Substance: ESOMEPRAZOLE
     Indication: GASTROOESOPHAGEAL REFLUX DISEASE
     Route: 048
     Dates: start: 20200805
  6. SKENAN [Concomitant]
     Active Substance: MORPHINE SULFATE
     Indication: PAIN
     Dosage: 1?0?1
     Route: 048
     Dates: start: 20200805
  7. GABAPENTINE [Concomitant]
     Active Substance: GABAPENTIN
     Indication: PAIN
     Dosage: 1?1?1
     Route: 048
     Dates: start: 20200805
  8. PARACETAMOL [Concomitant]
     Active Substance: ACETAMINOPHEN
     Indication: PAIN
     Route: 048
     Dates: start: 20200805
  9. POLARAMINE [Suspect]
     Active Substance: DEXCHLORPHENIRAMINE MALEATE
     Indication: ALLERGY PROPHYLAXIS
     Route: 048
     Dates: start: 20210108, end: 20210121
  10. PRIMPERAN [Concomitant]
     Active Substance: METOCLOPRAMIDE HYDROCHLORIDE
     Indication: NAUSEA
     Route: 048
     Dates: start: 20200805

REACTIONS (2)
  - Atrial fibrillation [Not Recovered/Not Resolved]
  - Tachycardia [Not Recovered/Not Resolved]

NARRATIVE: CASE EVENT DATE: 20210121
